FAERS Safety Report 12626729 (Version 2)
Quarter: 2016Q3

REPORT INFORMATION
  Report Type: Spontaneous
  Country: US (occurrence: US)
  Receive Date: 20160805
  Receipt Date: 20160812
  Transmission Date: 20161109
  Serious: Yes (Hospitalization, Other)
  Sender: FDA-Public Use
  Company Number: US-PFIZER INC-2016371021

PATIENT
  Age: 62 Year
  Sex: Female

DRUGS (4)
  1. CHLORHEXIDINE [Concomitant]
     Active Substance: CHLORHEXIDINE
     Indication: ALVEOLAR OSTEITIS
     Dosage: UNK
  2. IBUPROFEN. [Concomitant]
     Active Substance: IBUPROFEN
     Indication: GINGIVAL PAIN
     Dosage: 400 MG, AS NEEDED (PRN)
  3. CLINDAMYCIN HCL [Suspect]
     Active Substance: CLINDAMYCIN HYDROCHLORIDE
     Indication: TOOTH INFECTION
     Dosage: 450 MG, 4X/DAY (1 TIMES PER 6 HOURS)
     Route: 048
  4. ACETAMINOPHEN. [Concomitant]
     Active Substance: ACETAMINOPHEN
     Indication: GINGIVAL PAIN
     Dosage: 750 MG, 4X/DAY (1 TIMES PER 6 HOURS)

REACTIONS (1)
  - Hepatotoxicity [Recovered/Resolved]
